FAERS Safety Report 12807282 (Version 3)
Quarter: 2016Q4

REPORT INFORMATION
  Report Type: Spontaneous
  Country: JP (occurrence: JP)
  Receive Date: 20161004
  Receipt Date: 20161207
  Transmission Date: 20170207
  Serious: Yes (Hospitalization, Other)
  Sender: FDA-Public Use
  Company Number: JP-VIFOR (INTERNATIONAL) INC.-VIT-2016-05971

PATIENT
  Age: 81 Year
  Sex: Female

DRUGS (7)
  1. NORVASC [Concomitant]
     Active Substance: AMLODIPINE BESYLATE
     Indication: HYPERTENSION
     Route: 048
     Dates: start: 20070116
  2. ASCORBIC ACID. [Concomitant]
     Active Substance: ASCORBIC ACID
     Dosage: ONE AMPOULE
     Route: 041
     Dates: start: 201607, end: 20160720
  3. MAGMITT [Concomitant]
     Active Substance: MAGNESIUM OXIDE
     Indication: HYPERTENSION
     Route: 048
     Dates: start: 20060829
  4. REPLAS [Concomitant]
     Active Substance: DEXTROSE\SODIUM CHLORIDE\SODIUM LACTATE
     Route: 041
     Dates: start: 201607, end: 20160720
  5. THIAMINE HYDROCHLORIDE. [Concomitant]
     Active Substance: THIAMINE HYDROCHLORIDE
     Dosage: ONE AMPOULE
     Route: 041
     Dates: start: 201607, end: 20160720
  6. RIBOFLAVIN [Concomitant]
     Active Substance: RIBOFLAVIN
     Dosage: ONE AMPOULE
     Route: 041
     Dates: start: 201607, end: 20160720
  7. MIRCERA [Suspect]
     Active Substance: METHOXY POLYETHYLENE GLYCOL-EPOETIN BETA
     Indication: NEPHROGENIC ANAEMIA
     Route: 058
     Dates: start: 20160714, end: 20160714

REACTIONS (3)
  - Nausea [Unknown]
  - Colonic abscess [Unknown]
  - Pyrexia [Unknown]

NARRATIVE: CASE EVENT DATE: 2016
